FAERS Safety Report 8133286-0 (Version None)
Quarter: 2012Q1

REPORT INFORMATION
  Report Type: 
  Country: None (occurrence: None)
  Receive Date: 20120213
  Receipt Date: 20120207
  Transmission Date: 20120608
  Serious: Yes (Hospitalization, Disabling)
  Sender: FDA-Public Use
  Company Number: US-BAYER-2012-012661

PATIENT
  Age: 48 Year
  Sex: Male

DRUGS (4)
  1. AVELOX [Suspect]
     Indication: RHINITIS
     Dosage: DOSE: 400MG
     Route: 048
     Dates: start: 20010101, end: 20110101
  2. PREDNISONE TAB [Concomitant]
     Indication: DRUG HYPERSENSITIVITY
  3. INHALERS [Concomitant]
     Indication: DRUG HYPERSENSITIVITY
  4. NASAL SPRAY [Concomitant]
     Indication: DRUG HYPERSENSITIVITY
     Route: 055

REACTIONS (2)
  - TENDON RUPTURE [None]
  - ARTHROPATHY [None]
